FAERS Safety Report 15007629 (Version 1)
Quarter: 2018Q2

REPORT INFORMATION
  Report Type: Spontaneous
  Country: JP (occurrence: JP)
  Receive Date: 20180613
  Receipt Date: 20180613
  Transmission Date: 20180711
  Serious: Yes (Other)
  Sender: FDA-Public Use
  Company Number: JP-PFIZER INC-2018241150

PATIENT
  Age: 60 Year
  Sex: Male

DRUGS (3)
  1. CAMPTO [Suspect]
     Active Substance: IRINOTECAN
     Dosage: UNK UNK, 1X/DAY
     Route: 041
     Dates: start: 20180529, end: 20180529
  2. CAMPTO [Suspect]
     Active Substance: IRINOTECAN
     Indication: RECTAL CANCER
     Dosage: UNK UNK, 1X/DAY
     Route: 041
     Dates: start: 20180515, end: 20180515
  3. ERBITUX [Concomitant]
     Active Substance: CETUXIMAB
     Dosage: UNK
     Dates: start: 20180515, end: 20180529

REACTIONS (1)
  - Enterocolitis [Not Recovered/Not Resolved]

NARRATIVE: CASE EVENT DATE: 20180603
